FAERS Safety Report 7612848-0 (Version None)
Quarter: 2011Q3

REPORT INFORMATION
  Report Type: 
  Country: None (occurrence: None)
  Receive Date: 20110712
  Receipt Date: 20110604
  Transmission Date: 20111222
  Serious: Yes (Hospitalization)
  Sender: FDA-Public Use
  Company Number: 034795

PATIENT
  Age: 31 Year
  Sex: Female
  Weight: 88 kg

DRUGS (1)
  1. KEPPRA [Suspect]
     Dosage: 1000 MG, ORAL
     Route: 048
     Dates: start: 20100526

REACTIONS (1)
  - EPILEPSY [None]
